FAERS Safety Report 9197757 (Version 1)
Quarter: 2013Q1

REPORT INFORMATION
  Report Type: Spontaneous
  Country: IT (occurrence: IT)
  Receive Date: 20130328
  Receipt Date: 20130328
  Transmission Date: 20140127
  Serious: Yes (Hospitalization)
  Sender: FDA-Public Use
  Company Number: IT-TEVA-393749ISR

PATIENT
  Age: 51 Year
  Sex: Female

DRUGS (1)
  1. OXALIPLATINO [Suspect]
     Indication: COLON CANCER
     Dosage: 140 MILLIGRAM DAILY;
     Route: 042
     Dates: start: 20120910, end: 20130305

REACTIONS (4)
  - Vomiting [Recovering/Resolving]
  - Hypertensive crisis [Recovering/Resolving]
  - Headache [Recovering/Resolving]
  - Chest pain [Recovering/Resolving]
